FAERS Safety Report 5325516-5 (Version None)
Quarter: 2007Q2

REPORT INFORMATION
  Report Type: 
  Country: None (occurrence: None)
  Receive Date: 20070515
  Receipt Date: 20070503
  Transmission Date: 20071010
  Serious: Yes (Other)
  Sender: FDA-Public Use
  Company Number: FR-PFIZER INC-2007036875

PATIENT
  Sex: Male

DRUGS (2)
  1. CHAMPIX [Suspect]
  2. SERUMLIPIDREDUCING AGENTS [Concomitant]
     Indication: HYPERCHOLESTEROLAEMIA

REACTIONS (1)
  - APHONIA [None]
